FAERS Safety Report 10017974 (Version 1)
Quarter: 2014Q1

REPORT INFORMATION
  Report Type: Report from Study
  Country: CA (occurrence: CA)
  Receive Date: 20140318
  Receipt Date: 20140318
  Transmission Date: 20141002
  Serious: Yes (Other)
  Sender: FDA-Public Use
  Company Number: CA-JNJFOC-20140308162

PATIENT
  Age: 55 Year
  Sex: Female
  Weight: 92 kg

DRUGS (15)
  1. REMICADE [Suspect]
     Indication: CROHN^S DISEASE
     Route: 042
     Dates: start: 20111110, end: 20140109
  2. METHOTREXATE [Concomitant]
     Route: 058
  3. SULFASALAZINE [Concomitant]
     Route: 065
  4. AMLODIPINE [Concomitant]
     Route: 065
  5. BISOPROLOL [Concomitant]
     Route: 065
  6. CLONIDINE [Concomitant]
     Route: 065
  7. AMITRIPTYLINE [Concomitant]
     Route: 065
  8. FOLIC ACID [Concomitant]
     Dosage: 6X/WEEK
     Route: 048
  9. LYRICA [Concomitant]
     Dosage: 100MG AM, 150MG PM
     Route: 065
  10. PANTOPRAZOLE [Concomitant]
     Route: 065
  11. VITAMIN B [Concomitant]
     Route: 065
  12. VITAMIN C [Concomitant]
     Route: 065
  13. VITAMIN D [Concomitant]
     Route: 065
  14. CALCIUM [Concomitant]
     Route: 065
  15. METHOTREXATE [Concomitant]
     Route: 048

REACTIONS (2)
  - Spinal osteoarthritis [Not Recovered/Not Resolved]
  - Thyroid cancer [Unknown]
